FAERS Safety Report 8559445 (Version 3)
Quarter: 2013Q1

REPORT INFORMATION
  Report Type: Spontaneous
  Country: US (occurrence: US)
  Receive Date: 20120513
  Receipt Date: 20130304
  Transmission Date: 20140127
  Serious: No
  Sender: FDA-Public Use
  Company Number: US-ELI_LILLY_AND_COMPANY-US201205002701

PATIENT
  Age: 81 Year
  Sex: Female

DRUGS (9)
  1. FORTEO [Suspect]
     Indication: OSTEOPOROSIS
     Dosage: 20 UG, QD
     Dates: start: 20120323, end: 201209
  2. FORTEO [Suspect]
     Dosage: 20 UG, QD
     Dates: start: 20120323, end: 201209
  3. EFFIENT [Suspect]
     Dosage: 10 MG, QD
  4. LISINOPRIL [Concomitant]
     Dosage: 10 MG, QD
  5. ATORVASTATIN [Concomitant]
     Dosage: 10 MG, QD
  6. ASPIRIN [Concomitant]
     Dosage: 325 MG, QD
  7. VITAMINS [Concomitant]
     Dosage: UNK UNK, QD
  8. VITAMIN C [Concomitant]
     Indication: PRODUCT USED FOR UNKNOWN INDICATION
  9. CALCIUM + VITAMIN D [Concomitant]
     Indication: PRODUCT USED FOR UNKNOWN INDICATION

REACTIONS (5)
  - Back injury [Unknown]
  - Back pain [Unknown]
  - Diverticulitis [Unknown]
  - Abdominal pain upper [Unknown]
  - Incorrect product storage [Unknown]
